FAERS Safety Report 7744244-X (Version None)
Quarter: 2011Q3

REPORT INFORMATION
  Report Type: 
  Country: None (occurrence: None)
  Receive Date: 20110912
  Receipt Date: 20110831
  Transmission Date: 20111222
  Serious: Yes (Other)
  Sender: FDA-Public Use
  Company Number: PHHY2011PT79919

PATIENT
  Age: 58 Year
  Sex: Female

DRUGS (8)
  1. POTASSIUM CHLORIDE [Concomitant]
     Dosage: 1200 MG, TID
  2. PAROXETINE HCL [Concomitant]
  3. BROMAZEPAM [Concomitant]
  4. ROSUVASTATIN [Concomitant]
  5. CHLORTHALIDONE [Suspect]
  6. BUPROPION HCL [Concomitant]
  7. OMEPRAZOLE [Concomitant]
  8. SPIRONOLACTONE [Suspect]
     Dosage: 50 MG, UNK

REACTIONS (4)
  - ASTHENIA [None]
  - HYPOKALAEMIA [None]
  - DRUG ABUSE [None]
  - BLOOD PRESSURE DECREASED [None]
